FAERS Safety Report 6992309-2 (Version None)
Quarter: 2010Q3

REPORT INFORMATION
  Report Type: 
  Country: None (occurrence: None)
  Receive Date: 20100915
  Receipt Date: 20100906
  Transmission Date: 20110219
  Serious: Yes (Death, Other)
  Sender: FDA-Public Use
  Company Number: 2009AL004499

PATIENT
  Age: 33 Year
  Sex: Female

DRUGS (7)
  1. VENLAFAXINE HCL [Suspect]
     Dosage: 225 MG; PO
     Route: 048
     Dates: start: 20040101
  2. CLOZARIL [Suspect]
     Indication: SCHIZOPHRENIA
     Dosage: PO
     Route: 048
     Dates: start: 20050819
  3. CLOZARIL [Suspect]
     Indication: SCHIZOPHRENIA
     Dosage: 650 MG;
     Dates: start: 20090701
  4. EFFEXOR [Suspect]
     Dosage: 150 MG;QD;PO
     Route: 048
     Dates: start: 20040101
  5. EFFEXOR [Suspect]
     Dosage: 225 MG;
  6. VALPROIC ACID (CON.) [Concomitant]
  7. ATENOLOL (CON.) [Concomitant]

REACTIONS (5)
  - CONVULSION [None]
  - DRUG INTERACTION [None]
  - SCHIZOPHRENIA [None]
  - SYNCOPE [None]
  - THERAPEUTIC AGENT TOXICITY [None]
